FAERS Safety Report 19763318 (Version 1)
Quarter: 2021Q3

REPORT INFORMATION
  Report Type: Report from Study
  Country: JP (occurrence: JP)
  Receive Date: 20210830
  Receipt Date: 20210830
  Transmission Date: 20211014
  Serious: Yes (Other)
  Sender: FDA-Public Use
  Company Number: JP-RECORDATI RARE DISEASES INC.-2019010439

PATIENT
  Age: 2 Day
  Sex: Male
  Weight: .52 kg

DRUGS (14)
  1. CLAFORAN GALAXY [Concomitant]
     Indication: INFECTION PROPHYLAXIS
     Dosage: UNK, UNK
     Route: 042
     Dates: start: 20190426, end: 20190429
  2. NEOPROFEN [Suspect]
     Active Substance: IBUPROFEN LYSINE
     Indication: PATENT DUCTUS ARTERIOSUS
     Dosage: 5 MILLIGRAM, QD
     Route: 042
     Dates: start: 20190426, end: 20190426
  3. KAYTWO N [Concomitant]
     Active Substance: MENATETRENONE
     Indication: HAEMORRHAGE PROPHYLAXIS
     Dosage: UNK, UNK
     Route: 042
     Dates: start: 20190426, end: 20190504
  4. FENTANYL. [Concomitant]
     Active Substance: FENTANYL
     Indication: HAEMORRHAGE PROPHYLAXIS
     Dosage: UNK, UNK
     Route: 042
     Dates: start: 20190426, end: 20190505
  5. ACOALAN [Concomitant]
     Indication: HAEMORRHAGE PROPHYLAXIS
     Dosage: UNK, UNK
     Route: 042
     Dates: start: 20190426, end: 20190428
  6. VENOGLOBULIN IH [Concomitant]
     Active Substance: HUMAN IMMUNOGLOBULIN G
     Indication: INFECTION PROPHYLAXIS
     Dosage: UNK, UNK
     Route: 042
     Dates: start: 20190426, end: 20190430
  7. CATABON LOW [Concomitant]
     Indication: HYPOTENSION
     Dosage: UNK, UNK
     Route: 042
     Dates: start: 20190426, end: 20190426
  8. AMIKAMYCIN [Concomitant]
     Active Substance: AMIKACIN SULFATE
     Indication: INFECTION PROPHYLAXIS
     Dosage: UNK, UNK
     Route: 042
     Dates: start: 20190426, end: 20190428
  9. VICCILIN [Concomitant]
     Active Substance: AMPICILLIN SODIUM
     Indication: INFECTION PROPHYLAXIS
     Dosage: UNK, UNK
     Route: 042
     Dates: start: 20190426, end: 20190429
  10. CALCICOL [Concomitant]
     Active Substance: CALCIUM GLUCONATE
     Indication: FLUID REPLACEMENT
     Dosage: UNK, UNK
     Route: 042
     Dates: start: 20190426, end: 20190427
  11. FUNGUARD [Concomitant]
     Active Substance: MICAFUNGIN SODIUM
     Indication: INFECTION PROPHYLAXIS
     Dosage: UNK, UNK
     Route: 042
     Dates: start: 20190426, end: 20190520
  12. FIBROGAMMIN [Concomitant]
     Active Substance: FACTOR XIII CONCENTRATE (HUMAN)
     Indication: HAEMORRHAGE PROPHYLAXIS
     Dosage: UNK, UNK
     Route: 042
     Dates: start: 20190426, end: 20190430
  13. FLORID D [Concomitant]
     Indication: INFECTION PROPHYLAXIS
     Dosage: UNK, UNK
     Route: 048
     Dates: start: 20190426, end: 20190517
  14. SURFACTANT BL [Concomitant]
     Active Substance: CALFACTANT
     Indication: NEONATAL RESPIRATORY DISTRESS SYNDROME
     Dosage: UNK, UNK
     Route: 037
     Dates: start: 20190426, end: 20190426

REACTIONS (3)
  - Deafness [Not Recovered/Not Resolved]
  - Intraventricular haemorrhage [Not Recovered/Not Resolved]
  - Hyperglycaemia [Recovered/Resolved]

NARRATIVE: CASE EVENT DATE: 20190430
